FAERS Safety Report 7047778-9 (Version None)
Quarter: 2010Q4

REPORT INFORMATION
  Report Type: 
  Country: None (occurrence: None)
  Receive Date: 20101015
  Receipt Date: 20101005
  Transmission Date: 20110411
  Serious: Yes (Other)
  Sender: FDA-Public Use
  Company Number: US-PFIZER INC-2008010525

PATIENT
  Sex: Female
  Weight: 65.76 kg

DRUGS (14)
  1. DETROL LA [Suspect]
     Indication: URGE INCONTINENCE
     Dosage: UNK
     Route: 048
  2. TOVIAZ [Suspect]
     Indication: HYPERTONIC BLADDER
     Dosage: 4 MG, UNK
     Route: 048
     Dates: start: 20100101
  3. TOVIAZ [Suspect]
     Dosage: 8 MG, DAILY
     Route: 048
     Dates: start: 20100301, end: 20100404
  4. SYNTHROID [Concomitant]
     Dosage: 0.88 UG, UNK
  5. PROPAFENONE [Concomitant]
     Dosage: 150 MG, 3X/DAY
  6. NORVASC [Concomitant]
     Dosage: 2.5 MG, 2X/DAY
  7. OYSTER SHELL CALCIUM [Concomitant]
     Dosage: 500 MG, UNK
  8. WARFARIN [Concomitant]
     Dosage: 1.25MG ON SATURDAY, SUNDAY,TUESDAY, THURSDAY AND 2.5MG ON MONDAY, WEDNESDAY AND FRIDAY
  9. DIGOXIN [Concomitant]
     Dosage: 0.25 MG, UNK
  10. CRESTOR [Concomitant]
     Dosage: 10 MG, UNK
  11. MICARDIS [Concomitant]
     Dosage: 40 MG, UNK
  12. ZETIA [Concomitant]
     Dosage: 10 MG, UNK
  13. CHONDROITIN/GLUCOSAMINE [Concomitant]
     Dosage: 1 OUNCE, 1X/DAY
  14. CO-Q-10 [Concomitant]
     Dosage: 100 MG, UNK

REACTIONS (9)
  - CONSTIPATION [None]
  - DRUG INEFFECTIVE [None]
  - DRUG PRESCRIBING ERROR [None]
  - FAECES HARD [None]
  - FEAR [None]
  - INTRACRANIAL ANEURYSM [None]
  - NOCTURIA [None]
  - URINARY INCONTINENCE [None]
  - URINARY RETENTION [None]
